FAERS Safety Report 7439573-3 (Version None)
Quarter: 2011Q2

REPORT INFORMATION
  Report Type: 
  Country: None (occurrence: None)
  Receive Date: 20110427
  Receipt Date: 20110419
  Transmission Date: 20111010
  Serious: Yes (Hospitalization, Other)
  Sender: FDA-Public Use
  Company Number: IT-PFIZER INC-2011088435

PATIENT
  Age: 88 Year
  Sex: Male

DRUGS (8)
  1. ASPIRIN [Concomitant]
     Dosage: 100 MG, UNK
     Route: 048
  2. CASODEX [Concomitant]
     Indication: PROSTATE CANCER
     Dosage: 50 MG, UNK
     Route: 048
     Dates: start: 20090407
  3. DOXAZOSIN MESILATE [Concomitant]
     Dosage: 2 MG, UNK
     Route: 048
  4. CORDARONE [Suspect]
     Indication: EXTRASYSTOLES
     Dosage: 200 MG
     Route: 048
     Dates: start: 20070407, end: 20110407
  5. CARVEDILOL [Suspect]
     Dosage: 6.25 MG, 1X/DAY
     Route: 048
     Dates: start: 20090407, end: 20110407
  6. KARVEA [Suspect]
     Dosage: 150 MG, 1X/DAY
     Route: 048
     Dates: start: 20090407, end: 20110407
  7. MODURETIC 5-50 [Suspect]
     Dosage: 5 MG/50 MG DAILY
     Route: 048
     Dates: start: 20090407, end: 20110407
  8. ALLOPURINOL [Concomitant]
     Dosage: 30 MG, UNK
     Route: 048

REACTIONS (4)
  - BRADYCARDIA [None]
  - DRUG INTERACTION [None]
  - HYPERTENSION [None]
  - HYPERKALAEMIA [None]
